FAERS Safety Report 5186513-6 (Version None)
Quarter: 2006Q4

REPORT INFORMATION
  Report Type: 
  Country: None (occurrence: None)
  Receive Date: 20061213
  Receipt Date: 20061201
  Transmission Date: 20070319
  Serious: Yes (Hospitalization)
  Sender: FDA-Public Use
  Company Number: 2006PV000037

PATIENT
  Age: 8 Year
  Sex: Male

DRUGS (15)
  1. DEPOCYTE               (CYTARABINE) [Suspect]
     Dosage: 50 MG; QM; INTH
     Dates: end: 20060901
  2. IFOSFAMIDE [Concomitant]
  3. ETOPOSIDE [Concomitant]
  4. FLUDARABINE [Concomitant]
  5. THIOTEPA [Concomitant]
  6. MELPHALAN [Concomitant]
  7. STEROID ANTIBACTERIALS [Concomitant]
  8. FOLACIN [Concomitant]
  9. FUNGIZONE [Concomitant]
  10. BACTRIM [Concomitant]
  11. STESOLID [Concomitant]
  12. CELLUVISC [Concomitant]
  13. PREDNISOLONE [Concomitant]
  14. CYTOSTATICS [Concomitant]
  15. DOXORUBICIN HCL [Concomitant]

REACTIONS (16)
  - BLOOD MAGNESIUM DECREASED [None]
  - CEREBRAL HAEMORRHAGE [None]
  - CONTUSION [None]
  - CONVULSION [None]
  - ECCHYMOSIS [None]
  - GRAFT VERSUS HOST DISEASE [None]
  - HAEMATOMA [None]
  - LYMPHOCYTOSIS [None]
  - NAUSEA [None]
  - NEUTROPENIA [None]
  - OXYGEN SATURATION DECREASED [None]
  - PETECHIAE [None]
  - SWELLING FACE [None]
  - THROMBOCYTOPENIA [None]
  - VASCULITIS [None]
  - VOMITING [None]
